FAERS Safety Report 5245611-9 (Version None)
Quarter: 2007Q1

REPORT INFORMATION
  Report Type: 
  Country: None (occurrence: None)
  Receive Date: 20070223
  Receipt Date: 20070213
  Transmission Date: 20070707
  Serious: Yes (Hospitalization)
  Sender: FDA-Public Use
  Company Number: FR-BOEHRINGER INGELHEIM PHARMACEUTICALS, INC.-2007-DE-00925GD

PATIENT

DRUGS (4)
  1. NEVIRAPINE [Suspect]
     Indication: HIV INFECTION
  2. DIDANOSINE [Suspect]
     Indication: HIV INFECTION
  3. STAVUDINE [Suspect]
     Indication: HIV INFECTION
  4. ANTI-HIV AGENTS [Suspect]
     Indication: HIV INFECTION

REACTIONS (7)
  - ASCITES [None]
  - NODULAR REGENERATIVE HYPERPLASIA [None]
  - OESOPHAGEAL VARICES HAEMORRHAGE [None]
  - PORTAL HYPERTENSIVE GASTROPATHY [None]
  - SPLENOMEGALY [None]
  - THROMBOCYTOPENIA [None]
  - VARICES OESOPHAGEAL [None]
